FAERS Safety Report 16631434 (Version 2)
Quarter: 2019Q3

REPORT INFORMATION
  Report Type: Spontaneous
  Country: US (occurrence: US)
  Receive Date: 20190725
  Receipt Date: 20190828
  Transmission Date: 20191004
  Serious: No
  Sender: FDA-Public Use
  Company Number: US-BAYER-2019-138612

PATIENT
  Sex: Female

DRUGS (1)
  1. MIRALAX [Suspect]
     Active Substance: POLYETHYLENE GLYCOL 3350
     Dosage: 2 DF, QD
     Route: 048

REACTIONS (4)
  - Diarrhoea [Unknown]
  - Incorrect product administration duration [Unknown]
  - Therapeutic response shortened [Unknown]
  - Change of bowel habit [Unknown]
